FAERS Safety Report 8098337-0 (Version None)
Quarter: 2012Q1

REPORT INFORMATION
  Report Type: 
  Country: None (occurrence: None)
  Receive Date: 20120131
  Receipt Date: 20120123
  Transmission Date: 20120608
  Serious: Yes (Hospitalization)
  Sender: FDA-Public Use
  Company Number: CA-ALEXION-A201200122

PATIENT
  Sex: Female

DRUGS (12)
  1. CALCIUM [Concomitant]
     Dosage: 300 MG, TID
     Route: 048
  2. VITARUBIN [Concomitant]
     Indication: PAIN IN EXTREMITY
     Dosage: UNK, ONE COAT PRN
     Dates: start: 20111001
  3. COUMADIN [Concomitant]
     Indication: PAROXYSMAL NOCTURNAL HAEMOGLOBINURIA
     Dosage: 2 MG, QD
     Route: 048
     Dates: start: 20090901
  4. FOLIC ACID [Concomitant]
     Indication: PAROXYSMAL NOCTURNAL HAEMOGLOBINURIA
     Dosage: 5 MG, QW
     Route: 048
     Dates: start: 20110608
  5. CELEBREX [Concomitant]
     Indication: PAIN IN EXTREMITY
     Dosage: 200 MG, BID
     Route: 048
     Dates: start: 20111020, end: 20111119
  6. SOLIRIS [Suspect]
     Dosage: 900 MG, Q2W
     Route: 042
     Dates: start: 20101228
  7. SOLIRIS [Suspect]
     Indication: PAROXYSMAL NOCTURNAL HAEMOGLOBINURIA
     Dosage: 600 MG, QW
     Route: 042
     Dates: start: 20101201, end: 20101222
  8. PROTYLOL [Concomitant]
     Dosage: 20 MG, Q6H PRN
     Route: 048
  9. CENTRUM MULTIVITAMIN [Concomitant]
     Dosage: UNK, QD
     Route: 048
  10. ACETAMINOPHEN [Concomitant]
     Dosage: 325 MG, PRN
     Route: 048
  11. CLONIDINE [Concomitant]
     Indication: HYPERTENSION
     Dosage: 0.05 MG, BID
     Route: 048
     Dates: start: 20090930
  12. VITAMIN D [Concomitant]
     Dosage: 1000 IU, QD
     Route: 048

REACTIONS (2)
  - PYREXIA [None]
  - GASTROENTERITIS [None]
